FAERS Safety Report 24216634 (Version 1)
Quarter: 2024Q3

REPORT INFORMATION
  Report Type: Spontaneous
  Country: GB (occurrence: GB)
  Receive Date: 20240816
  Receipt Date: 20240816
  Transmission Date: 20241016
  Serious: Yes (Other)
  Sender: CIPLA
  Company Number: GB-MHRA-31390098

PATIENT

DRUGS (1)
  1. RIVAROXABAN [Suspect]
     Active Substance: RIVAROXABAN
     Indication: Aortic valve replacement
     Dosage: UNK
     Route: 065
     Dates: start: 2018

REACTIONS (3)
  - Gastrointestinal disorder [Unknown]
  - Iron deficiency [Unknown]
  - Blood test abnormal [Unknown]

NARRATIVE: CASE EVENT DATE: 20210101
